FAERS Safety Report 23245120 (Version 2)
Quarter: 2023Q4

REPORT INFORMATION
  Report Type: Spontaneous
  Country: US (occurrence: US)
  Receive Date: 20231130
  Receipt Date: 20231201
  Transmission Date: 20240109
  Serious: No
  Sender: FDA-Public Use
  Company Number: US-IBSA PHARMA INC.-2023IBS000043

PATIENT

DRUGS (1)
  1. TIROSINT [Suspect]
     Active Substance: LEVOTHYROXINE SODIUM
     Indication: Hypothyroidism
     Dosage: 200 MICROGRAM, QD
     Route: 048
     Dates: start: 202301, end: 2023

REACTIONS (2)
  - Drug intolerance [Recovered/Resolved]
  - Product complaint [Unknown]
